FAERS Safety Report 4899813-1 (Version None)
Quarter: 2006Q1

REPORT INFORMATION
  Report Type: 
  Country: None (occurrence: None)
  Receive Date: 20060118
  Receipt Date: 20050913
  Transmission Date: 20060701
  Serious: No
  Sender: FDA-Public Use
  Company Number: 2005001794

PATIENT
  Age: 57 Year
  Sex: Male

DRUGS (7)
  1. TARCEVA [Suspect]
     Indication: NON-SMALL CELL LUNG CANCER
     Dosage: 150 MG (QD), ORAL
     Route: 048
  2. DILAUDID [Concomitant]
  3. NAPROXEN [Concomitant]
  4. VALSARTAN [Concomitant]
  5. ACETAMINOPHEN [Concomitant]
  6. DILTIAZEM [Concomitant]
  7. AREDIA [Concomitant]

REACTIONS (2)
  - DYSPEPSIA [None]
  - NAUSEA [None]
